FAERS Safety Report 15983788 (Version 1)
Quarter: 2019Q1

REPORT INFORMATION
  Report Type: Spontaneous
  Country: GB (occurrence: GB)
  Receive Date: 20190220
  Receipt Date: 20190220
  Transmission Date: 20190418
  Serious: Yes (Other)
  Sender: FDA-Public Use
  Company Number: GB-ACCORD-107709

PATIENT
  Age: 24 Year
  Sex: Female
  Weight: 69 kg

DRUGS (2)
  1. SERTRALINE [Suspect]
     Active Substance: SERTRALINE HYDROCHLORIDE
     Indication: ANXIETY
     Route: 048
     Dates: start: 20180316, end: 20180321
  2. RIGEVIDON [Concomitant]
     Active Substance: ETHINYL ESTRADIOL\LEVONORGESTREL

REACTIONS (1)
  - Persistent genital arousal disorder [Recovering/Resolving]

NARRATIVE: CASE EVENT DATE: 20180321
